FAERS Safety Report 9771364 (Version 1)
Quarter: 2013Q4

REPORT INFORMATION
  Report Type: Spontaneous
  Country: JP (occurrence: JP)
  Receive Date: 20131218
  Receipt Date: 20131218
  Transmission Date: 20140711
  Serious: Yes (Other)
  Sender: FDA-Public Use
  Company Number: PHHY2013JP147821

PATIENT
  Age: 69 Year
  Sex: Male

DRUGS (1)
  1. VOLTAREN SR [Suspect]
     Dosage: 37.5 MG,
     Route: 048
     Dates: start: 201106, end: 201107

REACTIONS (1)
  - Interstitial lung disease [Unknown]
